FAERS Safety Report 18111206 (Version 5)
Quarter: 2021Q2

REPORT INFORMATION
  Report Type: Report from Study
  Country: BE (occurrence: BE)
  Receive Date: 20200804
  Receipt Date: 20210414
  Transmission Date: 20210717
  Serious: Yes (Hospitalization)
  Sender: FDA-Public Use
  Company Number: NVSC2020BE028328

PATIENT
  Age: 39 Year
  Sex: Female
  Weight: 65.4 kg

DRUGS (9)
  1. NOLICIN [Concomitant]
     Indication: CYSTITIS
     Dosage: UNK
     Route: 065
     Dates: start: 20200108, end: 20200117
  2. FLUCONAZOL [Concomitant]
     Active Substance: FLUCONAZOLE
     Indication: PROPHYLAXIS
     Dosage: UNK
     Route: 065
     Dates: start: 20200123, end: 20200211
  3. LORAZEPAM. [Concomitant]
     Active Substance: LORAZEPAM
     Indication: INSOMNIA
     Dosage: UNK
     Route: 065
     Dates: start: 20180415
  4. PLACEBO [Suspect]
     Active Substance: UNSPECIFIED INGREDIENT
     Indication: RELAPSING MULTIPLE SCLEROSIS
     Dosage: UNK
     Route: 058
     Dates: start: 20190604
  5. PARACETAMOL [Concomitant]
     Active Substance: ACETAMINOPHEN
     Indication: HEADACHE
     Dosage: UNK
     Route: 065
     Dates: start: 20190902
  6. OFATUMUMAB [Suspect]
     Active Substance: OFATUMUMAB
     Indication: RELAPSING MULTIPLE SCLEROSIS
     Dosage: 20 MG, Q4W
     Route: 058
     Dates: start: 20190528
  7. ANGELIQ [Concomitant]
     Active Substance: DROSPIRENONE\ESTRADIOL
     Indication: CONTRACEPTION
     Dosage: UNK
     Route: 065
     Dates: start: 20141001
  8. IBUPROFEN. [Concomitant]
     Active Substance: IBUPROFEN
     Indication: INFLUENZA
     Dosage: UNK
     Route: 065
     Dates: start: 20200108, end: 20200115
  9. PARACETAMOL [Concomitant]
     Active Substance: ACETAMINOPHEN
     Indication: INFLUENZA
     Dosage: UNK
     Route: 065
     Dates: start: 20200108, end: 20200115

REACTIONS (1)
  - Pneumonia [Recovered/Resolved]

NARRATIVE: CASE EVENT DATE: 20200123
